FAERS Safety Report 6917264-2 (Version None)
Quarter: 2010Q3

REPORT INFORMATION
  Report Type: 
  Country: None (occurrence: None)
  Receive Date: 20100810
  Receipt Date: 20100802
  Transmission Date: 20110219
  Serious: Yes (Other)
  Sender: FDA-Public Use
  Company Number: US-MERCK-1006USA01817

PATIENT
  Age: 75 Year
  Sex: Female

DRUGS (2)
  1. FOSAMAX [Suspect]
     Indication: OSTEOPOROSIS
     Route: 048
     Dates: start: 19920101, end: 20090901
  2. ALENDRONATE SODIUM [Suspect]
     Indication: OSTEOPOROSIS
     Route: 048
     Dates: start: 20080501, end: 20090901

REACTIONS (4)
  - BLINDNESS [None]
  - FALL [None]
  - FEMUR FRACTURE [None]
  - RETINAL TEAR [None]
